FAERS Safety Report 6582476-7 (Version None)
Quarter: 2010Q1

REPORT INFORMATION
  Report Type: 
  Country: None (occurrence: None)
  Receive Date: 20100216
  Receipt Date: 20100208
  Transmission Date: 20100710
  Serious: Yes (Hospitalization)
  Sender: FDA-Public Use
  Company Number: PHHO2009DE15160

PATIENT
  Sex: Male
  Weight: 68 kg

DRUGS (6)
  1. CERTICAN [Suspect]
     Indication: LIVER TRANSPLANT
     Dosage: 3.5 MG, BID
     Route: 048
     Dates: start: 20090925
  2. CERTICAN [Suspect]
     Dosage: 5.5 MG / DAY
     Route: 048
     Dates: end: 20100110
  3. CERTICAN [Suspect]
     Dosage: NO TREATMENT
     Dates: start: 20100111
  4. TACROLIMUS [Suspect]
     Indication: LIVER TRANSPLANT
     Dosage: 8.5 MG / DAY
     Route: 048
     Dates: start: 20091207, end: 20091221
  5. TACROLIMUS [Suspect]
     Dosage: 6 MG / DAY
     Route: 048
     Dates: start: 20091222, end: 20100120
  6. TACROLIMUS [Suspect]
     Dosage: 7 MG / DAY
     Route: 048
     Dates: start: 20100121, end: 20100125

REACTIONS (14)
  - BILIARY ISCHAEMIA [None]
  - CHOLANGITIS [None]
  - CHOLESTASIS [None]
  - CONCOMITANT DISEASE PROGRESSION [None]
  - DIALYSIS [None]
  - GENERAL PHYSICAL HEALTH DETERIORATION [None]
  - PANCYTOPENIA [None]
  - PLEURAL EFFUSION [None]
  - PNEUMONIA HERPES VIRAL [None]
  - PULMONARY FIBROSIS [None]
  - PYREXIA [None]
  - RENAL CYST [None]
  - RENAL FAILURE [None]
  - RENAL IMPAIRMENT [None]
